FAERS Safety Report 8989855 (Version 3)
Quarter: 2013Q2

REPORT INFORMATION
  Report Type: Report from Study
  Country: BR (occurrence: BR)
  Receive Date: 20121228
  Receipt Date: 20130529
  Transmission Date: 20140414
  Serious: Yes (Other)
  Sender: FDA-Public Use
  Company Number: BR-ROCHE-1172184

PATIENT
  Sex: Female

DRUGS (10)
  1. ACTEMRA [Suspect]
     Indication: RHEUMATOID ARTHRITIS
     Route: 042
     Dates: start: 201210
  2. ACTEMRA [Suspect]
     Indication: POLYARTHRITIS
  3. MABTHERA [Suspect]
     Indication: RHEUMATOID ARTHRITIS
     Route: 042
  4. MABTHERA [Suspect]
     Indication: POLYARTHRITIS
  5. INFLIXIMAB [Suspect]
     Indication: RHEUMATOID ARTHRITIS
     Route: 065
  6. CORTICOID [Suspect]
     Indication: PRODUCT USED FOR UNKNOWN INDICATION
     Route: 065
  7. DIPYRONE [Concomitant]
     Indication: ANALGESIC THERAPY
  8. TYLEX (BRAZIL) [Concomitant]
     Indication: ANALGESIC THERAPY
  9. RIVOTRIL [Concomitant]
  10. INSULIN [Concomitant]
     Indication: DIABETES MELLITUS

REACTIONS (4)
  - Weight increased [Not Recovered/Not Resolved]
  - Osteonecrosis [Recovering/Resolving]
  - Pain [Not Recovered/Not Resolved]
  - Hypotension [Unknown]
